FAERS Safety Report 7047333-0 (Version None)
Quarter: 2010Q4

REPORT INFORMATION
  Report Type: 
  Country: None (occurrence: None)
  Receive Date: 20101015
  Receipt Date: 20101008
  Transmission Date: 20110411
  Serious: Yes (Hospitalization, Other)
  Sender: FDA-Public Use
  Company Number: PHHO2009CA15831

PATIENT
  Sex: Male
  Weight: 80 kg

DRUGS (3)
  1. AFINITOR [Suspect]
     Indication: METASTATIC RENAL CELL CARCINOMA
     Dosage: 10 MG / DAY
     Route: 048
     Dates: start: 20091105, end: 20091128
  2. AFINITOR [Suspect]
     Dosage: 5 MG / DAY
     Route: 048
     Dates: start: 20091223, end: 20091229
  3. AFINITOR [Suspect]
     Dosage: 5 MG / 2 DAYS
     Route: 048
     Dates: start: 20100115, end: 20100117

REACTIONS (3)
  - DEHYDRATION [None]
  - RASH PRURITIC [None]
  - SKIN DISORDER [None]
